FAERS Safety Report 23731877 (Version 1)
Quarter: 2024Q2

REPORT INFORMATION
  Report Type: Spontaneous
  Country: US (occurrence: None)
  Receive Date: 20240410
  Receipt Date: 20240410
  Transmission Date: 20240716
  Serious: Yes (Other)
  Sender: FDA-Public Use
  Company Number: None

PATIENT
  Sex: Male

DRUGS (9)
  1. POMALYST [Suspect]
     Active Substance: POMALIDOMIDE
     Indication: Plasma cell myeloma
     Dosage: FREQ: TAKE 1 CAPSULE (2 MG TOTAL) BY MOUTH 1 (ONE) TIME EACH DAY FOR 21 DAYS ON AND 7 DAYS OFF. SWA
     Route: 048
     Dates: start: 20230927
  2. ACYCLOVIR [Concomitant]
     Active Substance: ACYCLOVIR
  3. AMLOPIDINE [Concomitant]
  4. ASPIRIN [Concomitant]
     Active Substance: ASPIRIN
  5. MONTELUKAST [Concomitant]
  6. MULTIVITAMI [Concomitant]
  7. PANTOPRAZOLE [Concomitant]
     Active Substance: PANTOPRAZOLE
  8. PREDNISONE [Concomitant]
  9. VITAMIN C [Concomitant]
     Active Substance: ASCORBIC ACID

REACTIONS (2)
  - Neuropathy peripheral [None]
  - Therapy interrupted [None]
